FAERS Safety Report 4285720-4 (Version None)
Quarter: 2004Q1

REPORT INFORMATION
  Report Type: 
  Country: None (occurrence: None)
  Receive Date: 20040203
  Receipt Date: 20040119
  Transmission Date: 20041129
  Serious: Yes (Hospitalization, Disabling, Other)
  Sender: FDA-Public Use
  Company Number: 2003EU007301

PATIENT
  Age: 75 Year
  Sex: Female
  Weight: 70 kg

DRUGS (4)
  1. PROTOPIC [Suspect]
     Indication: VULVAL LEUKOPLAKIA
     Dosage: 90 G, TOTAL DOSE, TOPICAL
     Route: 061
     Dates: start: 20030901, end: 20031101
  2. CORTICOSTEROIDS [Suspect]
     Dosage: TOPICAL
     Route: 061
  3. LEVOTHYROXINE SODIUM [Concomitant]
  4. SELOKEN (METOPROLOL TARTRATE) TABLET [Concomitant]

REACTIONS (2)
  - METASTASES TO LYMPH NODES [None]
  - SQUAMOUS CELL CARCINOMA [None]
